FAERS Safety Report 5152197-6 (Version None)
Quarter: 2006Q4

REPORT INFORMATION
  Report Type: 
  Country: None (occurrence: None)
  Receive Date: 20061116
  Receipt Date: 20061110
  Transmission Date: 20070319
  Serious: Yes (Life-Threatening)
  Sender: FDA-Public Use
  Company Number: GB-GLAXOSMITHKLINE-B0446699A

PATIENT
  Age: 67 Year
  Sex: Male
  Weight: 117 kg

DRUGS (7)
  1. ROSIGLITAZONE [Suspect]
     Indication: DIABETES MELLITUS NON-INSULIN-DEPENDENT
     Dosage: 4MG PER DAY
     Route: 048
     Dates: start: 20030915
  2. ASPIRIN [Concomitant]
     Route: 048
     Dates: start: 19980201
  3. ATENOLOL [Concomitant]
     Indication: HYPERTENSION
     Route: 048
     Dates: start: 19980201
  4. ATORVASTATIN CALCIUM [Concomitant]
     Dosage: 10MG PER DAY
     Route: 048
  5. LOSARTAN POSTASSIUM [Concomitant]
     Indication: HYPERTENSION
     Route: 048
     Dates: start: 20030501
  6. METFORMIN [Concomitant]
     Dosage: 500MG FOUR TIMES PER DAY
     Route: 048
     Dates: start: 20030101
  7. GLICLAZIDE [Concomitant]
     Dosage: 160MG TWICE PER DAY
     Route: 048
     Dates: start: 20020801

REACTIONS (1)
  - BLADDER CANCER [None]
